FAERS Safety Report 6269587-0 (Version None)
Quarter: 2009Q3

REPORT INFORMATION
  Report Type: 
  Country: None (occurrence: None)
  Receive Date: 20090714
  Receipt Date: 20090707
  Transmission Date: 20100115
  Serious: Yes (Hospitalization)
  Sender: FDA-Public Use
  Company Number: CHPA2009US14897

PATIENT
  Age: 46 Year
  Sex: Female
  Weight: 47.6 kg

DRUGS (2)
  1. 1-DAY VAGINAL OINTMENT (NCH) (TIOCONAZOLE) OINTMENT [Suspect]
     Indication: VULVOVAGINAL MYCOTIC INFECTION
     Dosage: 300 MG, ONCE/SINGLE, VAGINAL
     Route: 067
     Dates: start: 20090703, end: 20090703
  2. PREMARIN [Concomitant]

REACTIONS (2)
  - ABDOMINAL PAIN LOWER [None]
  - BLADDER PAIN [None]
